FAERS Safety Report 6028704-8 (Version None)
Quarter: 2009Q1

REPORT INFORMATION
  Report Type: 
  Country: None (occurrence: None)
  Receive Date: 20090102
  Receipt Date: 20081226
  Transmission Date: 20090719
  Serious: Yes (Other)
  Sender: FDA-Public Use
  Company Number: SP02057

PATIENT
  Age: 85 Year
  Sex: Female

DRUGS (16)
  1. VISICOL [Suspect]
     Indication: COLONOSCOPY
     Dosage: 50 GM, ORAL
     Route: 048
     Dates: start: 20080916, end: 20080916
  2. CANDESARTAN CILEXETIL [Suspect]
  3. SPIRONOLACTONE [Suspect]
  4. LANSOPRAZOLE [Concomitant]
  5. ECABET [Concomitant]
  6. SODIUM ALGINATE [Concomitant]
  7. SENNOSIDE [Concomitant]
  8. DIMETICONE [Concomitant]
  9. LACTOMIN [Concomitant]
  10. FLURBIPROFEN [Concomitant]
  11. ETODOLAC [Concomitant]
  12. IRSOGLADINE MALEATE [Concomitant]
  13. ASPIRIN [Concomitant]
  14. PRAVASTATIN [Concomitant]
  15. ZOPICLONE [Concomitant]
  16. CARVEDILOL [Suspect]

REACTIONS (6)
  - BLOOD CALCIUM DECREASED [None]
  - BLOOD PRESSURE DECREASED [None]
  - GASTRIC ULCER [None]
  - HYPOAESTHESIA [None]
  - MALAISE [None]
  - RENAL FAILURE ACUTE [None]
